FAERS Safety Report 4663068-3 (Version None)
Quarter: 2005Q2

REPORT INFORMATION
  Report Type: 
  Country: None (occurrence: None)
  Receive Date: 20050506
  Receipt Date: 20041013
  Transmission Date: 20051028
  Serious: Yes (Disabling)
  Sender: FDA-Public Use
  Company Number: 2004UW21358

PATIENT
  Age: 54 Year
  Sex: Female
  Weight: 63.502 kg

DRUGS (3)
  1. NEXIUM [Suspect]
     Indication: GASTROOESOPHAGEAL REFLUX DISEASE
     Dosage: 40 MG PO
     Route: 048
     Dates: end: 20041008
  2. VIOXX [Concomitant]
  3. CELEBREX [Concomitant]

REACTIONS (1)
  - POLYMYALGIA RHEUMATICA [None]
